FAERS Safety Report 6421507-1 (Version None)
Quarter: 2009Q4

REPORT INFORMATION
  Report Type: 
  Country: None (occurrence: None)
  Receive Date: 20091029
  Receipt Date: 20091029
  Transmission Date: 20100525
  Serious: Yes (Other)
  Sender: FDA-Public Use
  Company Number: None

PATIENT
  Sex: Female
  Weight: 76.2043 kg

DRUGS (2)
  1. EQUATE EXTRA STRENGTH PAIN RELEIV 24 CAPLES 500 MG EACH [Suspect]
     Indication: ERYTHEMA
     Dosage: 2
     Dates: start: 20091012
  2. EQUATE EXTRA STRENGTH PAIN RELEIV 24 CAPLES 500 MG EACH [Suspect]
     Indication: SWELLING
     Dosage: 2
     Dates: start: 20091012

REACTIONS (2)
  - OCULAR HYPERAEMIA [None]
  - SWELLING [None]
